FAERS Safety Report 23225605 (Version 1)
Quarter: 2023Q4

REPORT INFORMATION
  Report Type: Spontaneous
  Country: US (occurrence: None)
  Receive Date: 20231124
  Receipt Date: 20231124
  Transmission Date: 20240109
  Serious: Yes (Life-Threatening, Hospitalization, Other)
  Sender: FDA-Public Use
  Company Number: 2023A265519

PATIENT

DRUGS (1)
  1. SYMBICORT [Suspect]
     Active Substance: BUDESONIDE\FORMOTEROL FUMARATE DIHYDRATE
     Dosage: UNKNOWN UNKNOWN
     Route: 055

REACTIONS (8)
  - Respiratory arrest [Unknown]
  - Dyspnoea [Unknown]
  - Fatigue [Unknown]
  - Asthma [Unknown]
  - Chest discomfort [Unknown]
  - Soliloquy [Unknown]
  - Stress [Unknown]
  - Product dose omission issue [Unknown]
